FAERS Safety Report 16138018 (Version 1)
Quarter: 2019Q1

REPORT INFORMATION
  Report Type: Spontaneous
  Country: IT (occurrence: IT)
  Receive Date: 20190330
  Receipt Date: 20190330
  Transmission Date: 20190418
  Serious: Yes (Other)
  Sender: FDA-Public Use
  Company Number: IT-AUROBINDO-AUR-APL-2019-016745

PATIENT

DRUGS (1)
  1. ALENDRONIC ACID [Suspect]
     Active Substance: ALENDRONIC ACID
     Indication: OSTEOPOROSIS
     Dosage: 70 MILLIGRAM, EVERY WEEK
     Route: 065
     Dates: start: 20110601, end: 20140601

REACTIONS (2)
  - Osteonecrosis of jaw [Recovering/Resolving]
  - Fistula [Recovering/Resolving]

NARRATIVE: CASE EVENT DATE: 20141028
